FAERS Safety Report 20129384 (Version 3)
Quarter: 2024Q4

REPORT INFORMATION
  Report Type: Report from Study
  Country: US (occurrence: US)
  Receive Date: 20211130
  Receipt Date: 20241126
  Transmission Date: 20250114
  Serious: No
  Sender: TAKEDA
  Company Number: US-TAKEDA-2021TUS073963

PATIENT
  Age: 49 Year
  Sex: Female

DRUGS (9)
  1. TEDUGLUTIDE [Suspect]
     Active Substance: TEDUGLUTIDE
     Indication: Short-bowel syndrome
     Dosage: 3.47 MILLIGRAM, QD
     Dates: start: 20140127
  2. TEDUGLUTIDE [Suspect]
     Active Substance: TEDUGLUTIDE
  3. TEDUGLUTIDE [Suspect]
     Active Substance: TEDUGLUTIDE
  4. TEDUGLUTIDE [Suspect]
     Active Substance: TEDUGLUTIDE
  5. XIFAXAN [Concomitant]
     Active Substance: RIFAXIMIN
     Indication: Lactic acidosis
     Dosage: 550 MILLIGRAM, BID
     Dates: start: 20211103, end: 20220208
  6. XIFAXAN [Concomitant]
     Active Substance: RIFAXIMIN
     Indication: Confusional state
     Dosage: 2 DOSAGE FORM, BID
     Dates: start: 20220209
  7. METRONIDAZOLE [Concomitant]
     Active Substance: METRONIDAZOLE
     Indication: Lactic acidosis
     Dosage: 550 MILLIGRAM, TID
     Dates: start: 20210804
  8. BACLOFEN [Concomitant]
     Active Substance: BACLOFEN
     Indication: Muscle spasms
     Dosage: UNK
  9. ZOLPIDEM TARTRATE [Concomitant]
     Active Substance: ZOLPIDEM TARTRATE
     Indication: Sedative therapy
     Dosage: 5 MILLIGRAM

REACTIONS (1)
  - Colorectal adenoma [Recovered/Resolved]

NARRATIVE: CASE EVENT DATE: 20200219
